FAERS Safety Report 9784796 (Version 2)
Quarter: 2014Q1

REPORT INFORMATION
  Report Type: Spontaneous
  Country: US (occurrence: US)
  Receive Date: 20131227
  Receipt Date: 20140116
  Transmission Date: 20141002
  Serious: Yes (Other)
  Sender: FDA-Public Use
  Company Number: US-BEH-2013039689

PATIENT
  Age: 26 Year
  Sex: Male

DRUGS (11)
  1. INTRAVENOUS (IV) IMMUNOGLOBULIN THERAPY [Suspect]
     Indication: HYPOGAMMAGLOBULINAEMIA
     Dosage: TWO DOSES
     Route: 042
  2. RIBAVIRIN [Suspect]
     Indication: RESPIRATORY FAILURE
     Route: 048
  3. RIBAVIRIN [Suspect]
     Indication: RESPIRATORY FAILURE
     Route: 048
  4. RIBAVIRIN [Suspect]
     Indication: RESPIRATORY SYNCYTIAL VIRUS BRONCHIOLITIS
     Route: 048
  5. POSACONAZOLE [Concomitant]
     Indication: ANTIFUNGAL PROPHYLAXIS
  6. VALGANCICLOVIR [Concomitant]
     Indication: PROPHYLAXIS
  7. TRIMETHOPRIM-SULFAMETHOXAZOLE [Concomitant]
     Indication: ANTIFUNGAL PROPHYLAXIS
     Dosage: 1 DF = 1 SINGLE-STRENGTH TABLET
  8. TACROLIMUS [Concomitant]
     Indication: LUNG TRANSPLANT
  9. MYCOPHENOLATE MOFETIL [Concomitant]
     Indication: LUNG TRANSPLANT
  10. PREDNISONE [Concomitant]
     Indication: LUNG TRANSPLANT
  11. AZITHROMYCIN [Concomitant]
     Indication: PROPHYLAXIS
     Route: 048

REACTIONS (4)
  - Renal impairment [Unknown]
  - White blood cell count decreased [Not Recovered/Not Resolved]
  - Platelet count decreased [Unknown]
  - Toxicity to various agents [Unknown]
